FAERS Safety Report 18387121 (Version 1)
Quarter: 2020Q4

REPORT INFORMATION
  Report Type: Spontaneous
  Country: US (occurrence: US)
  Receive Date: 20201014
  Receipt Date: 20201014
  Transmission Date: 20210114
  Serious: Yes (Hospitalization)
  Sender: FDA-Public Use
  Company Number: None

PATIENT
  Age: 55 Year
  Sex: Female

DRUGS (6)
  1. LISINOPRIL. [Concomitant]
     Active Substance: LISINOPRIL
  2. NOVOLIN R [Concomitant]
     Active Substance: INSULIN HUMAN
  3. NOVOLIN N [Concomitant]
     Active Substance: INSULIN HUMAN
  4. MOTRIN IB [Concomitant]
     Active Substance: IBUPROFEN
  5. ACTEMRA [Suspect]
     Active Substance: TOCILIZUMAB
     Indication: RHEUMATOID ARTHRITIS
     Route: 058
     Dates: start: 20200916
  6. GABAPENTIN. [Concomitant]
     Active Substance: GABAPENTIN

REACTIONS (6)
  - Movement disorder [None]
  - Vomiting [None]
  - Nausea [None]
  - Diarrhoea [None]
  - Cough [None]
  - Chills [None]

NARRATIVE: CASE EVENT DATE: 20201011
